FAERS Safety Report 9407667 (Version 3)
Quarter: 2013Q3

REPORT INFORMATION
  Report Type: Spontaneous
  Country: US (occurrence: US)
  Receive Date: 20130718
  Receipt Date: 20130828
  Transmission Date: 20140515
  Serious: Yes (Hospitalization, Other)
  Sender: FDA-Public Use
  Company Number: US-ASTRAZENECA-2013SE52178

PATIENT
  Age: 61 Year
  Sex: Female
  Weight: 116.1 kg

DRUGS (46)
  1. SYMBICORT PMDI [Suspect]
     Indication: CHRONIC OBSTRUCTIVE PULMONARY DISEASE
     Dosage: 160/4.5  MCG 2 PUFFS BID
     Route: 055
     Dates: start: 2008
  2. SYMBICORT PMDI [Suspect]
     Indication: ASTHMA
     Dosage: 160/4.5  MCG 2 PUFFS BID
     Route: 055
     Dates: start: 2008
  3. OMEPRAZOLE [Suspect]
     Indication: GASTROOESOPHAGEAL REFLUX DISEASE
     Route: 048
     Dates: start: 2005
  4. ZESTRIL [Suspect]
     Indication: HYPERTENSION
     Route: 048
     Dates: start: 2008
  5. ONGLYZA [Suspect]
     Indication: TYPE 2 DIABETES MELLITUS
     Route: 048
     Dates: start: 201201
  6. BYETTA [Suspect]
     Indication: TYPE 2 DIABETES MELLITUS
     Route: 058
     Dates: start: 2009
  7. BYETTA [Suspect]
     Indication: TYPE 2 DIABETES MELLITUS
     Route: 058
     Dates: end: 20110916
  8. BYETTA [Suspect]
     Indication: TYPE 2 DIABETES MELLITUS
     Route: 058
     Dates: start: 201112
  9. SPIRIVA [Concomitant]
     Indication: ASTHMA
     Route: 055
     Dates: start: 2008
  10. SPIRIVA [Concomitant]
     Indication: ASTHMA
     Route: 055
  11. PROAIR HFA [Concomitant]
     Indication: PROPHYLAXIS
     Dosage: 90 MCG 2 PUFFS PRN
     Route: 055
  12. CARDIZEM [Concomitant]
     Indication: HYPERTENSION
     Route: 048
     Dates: start: 2008
  13. CARDIZEM [Concomitant]
     Indication: CARDIAC DISORDER
     Route: 048
     Dates: start: 2008
  14. COLACE [Concomitant]
     Indication: HAEMORRHOIDS
     Route: 048
     Dates: start: 2008
  15. FUROSEMIDE [Concomitant]
     Indication: FLUID RETENTION
     Route: 048
     Dates: start: 2011
  16. FUROSEMIDE [Concomitant]
     Indication: HYPERTENSION
     Route: 048
     Dates: start: 2011
  17. FUROSEMIDE [Concomitant]
     Indication: FLUID RETENTION
     Route: 048
     Dates: end: 2011
  18. FUROSEMIDE [Concomitant]
     Indication: HYPERTENSION
     Route: 048
     Dates: end: 2011
  19. FUROSEMIDE [Concomitant]
     Indication: FLUID RETENTION
     Route: 048
     Dates: start: 2011
  20. FUROSEMIDE [Concomitant]
     Indication: HYPERTENSION
     Route: 048
     Dates: start: 2011
  21. GABAPENTIN [Concomitant]
     Indication: NEUROPATHY PERIPHERAL
     Route: 048
     Dates: start: 2008
  22. GABAPENTIN [Concomitant]
     Indication: PAIN IN EXTREMITY
     Route: 048
     Dates: start: 2008
  23. GABAPENTIN [Concomitant]
     Indication: NEUROPATHY PERIPHERAL
     Route: 048
     Dates: start: 2008
  24. GABAPENTIN [Concomitant]
     Indication: PAIN IN EXTREMITY
     Route: 048
     Dates: start: 2008
  25. HUMALOG [Concomitant]
     Indication: TYPE 2 DIABETES MELLITUS
     Route: 058
  26. LEVEMIR [Concomitant]
     Indication: TYPE 2 DIABETES MELLITUS
     Route: 058
     Dates: start: 20130108
  27. LEVEMIR [Concomitant]
     Indication: TYPE 2 DIABETES MELLITUS
     Route: 058
     Dates: start: 20130108
  28. ATORVASTATIN [Concomitant]
     Indication: BLOOD CHOLESTEROL ABNORMAL
     Route: 048
     Dates: start: 2003
  29. AMITRIPTYLINE [Concomitant]
     Indication: MUSCLE SPASMS
     Route: 048
     Dates: start: 2010
  30. ASPIRIN [Concomitant]
     Indication: PROPHYLAXIS
     Route: 048
  31. IRON [Concomitant]
     Indication: BLOOD DISORDER
     Route: 048
     Dates: start: 2008
  32. VITAMIN C [Concomitant]
     Route: 048
  33. VITAMIN D [Concomitant]
     Indication: VITAMIN D DEFICIENCY
     Route: 048
  34. VITAMIN D [Concomitant]
     Indication: VITAMIN D DEFICIENCY
     Route: 048
  35. VITAMIN E [Concomitant]
     Indication: VITAMIN E DECREASED
     Route: 048
  36. MULTIVIITAMIN [Concomitant]
     Indication: BONE DISORDER
     Dosage: DAILY
     Route: 048
  37. NORCO [Concomitant]
     Indication: ARTHRALGIA
     Route: 048
     Dates: start: 2011
  38. AMBIEN [Concomitant]
     Indication: SLEEP DISORDER
     Route: 048
     Dates: start: 2011
  39. AMBIEN [Concomitant]
     Indication: SLEEP DISORDER
     Route: 048
  40. CINNAMON [Concomitant]
     Indication: CARDIOVASCULAR DISORDER
     Route: 048
     Dates: start: 2008
  41. CINNAMON [Concomitant]
     Indication: FOOD CRAVING
     Route: 048
     Dates: start: 2008
  42. OXYGEN [Concomitant]
     Indication: SLEEP APNOEA SYNDROME
     Dosage: 2 LITERS HS
     Route: 055
     Dates: start: 20121119
  43. COUMADIN [Concomitant]
  44. HYDROCODONE [Concomitant]
     Indication: PAIN
  45. ZOLPIDEM [Concomitant]
     Indication: SLEEP DISORDER
  46. DILTIAZEM HCL [Concomitant]
     Indication: HYPERTENSION
     Dates: start: 2008

REACTIONS (19)
  - Femur fracture [Recovering/Resolving]
  - Thrombosis [Recovering/Resolving]
  - Limb deformity [Unknown]
  - Hypoaesthesia [Unknown]
  - Fluid retention [Unknown]
  - Diabetes mellitus inadequate control [Unknown]
  - Gait disturbance [Unknown]
  - Knee deformity [Unknown]
  - Sleep apnoea syndrome [Unknown]
  - Visual impairment [Unknown]
  - Vision blurred [Unknown]
  - Sinus congestion [Unknown]
  - Fall [Recovered/Resolved]
  - Sensory loss [Not Recovered/Not Resolved]
  - Weight decreased [Recovering/Resolving]
  - Throat irritation [Unknown]
  - Muscle spasms [Unknown]
  - Intentional drug misuse [Unknown]
  - Drug dose omission [Unknown]
